FAERS Safety Report 20572339 (Version 1)
Quarter: 2022Q1

REPORT INFORMATION
  Report Type: Spontaneous
  Country: US (occurrence: US)
  Receive Date: 20220309
  Receipt Date: 20220309
  Transmission Date: 20220423
  Serious: No
  Sender: FDA-Public Use
  Company Number: US-ALKERMES INC.-ALK-2022-001096

PATIENT
  Sex: Female
  Weight: 54.422 kg

DRUGS (2)
  1. VIVITROL [Suspect]
     Active Substance: NALTREXONE
     Indication: Drug dependence
     Dosage: 380 MILLIGRAM, QMO
     Route: 030
  2. NALTREXONE [Concomitant]
     Active Substance: NALTREXONE
     Indication: Drug dependence
     Dosage: UNK
     Route: 048

REACTIONS (3)
  - Abnormal behaviour [Unknown]
  - Mental disorder [Unknown]
  - Panic attack [Unknown]
